FAERS Safety Report 6983116-5 (Version None)
Quarter: 2010Q3

REPORT INFORMATION
  Report Type: 
  Country: None (occurrence: None)
  Receive Date: 20100914
  Receipt Date: 20100615
  Transmission Date: 20110219
  Serious: No
  Sender: FDA-Public Use
  Company Number: US-PFIZER INC-2010075560

PATIENT
  Sex: Female
  Weight: 71 kg

DRUGS (7)
  1. LYRICA [Suspect]
     Indication: FIBROMYALGIA
     Dosage: 75 MG, 1X/DAY
     Route: 048
     Dates: start: 20060101
  2. ESTRACE [Concomitant]
     Indication: MENOPAUSAL SYMPTOMS
     Dosage: 2 MG, UNK
  3. OXYBUTYNIN [Concomitant]
     Indication: HYPERTONIC BLADDER
     Dosage: 5 MG, UNK
  4. IBUPROFEN [Concomitant]
     Indication: BACK PAIN
     Dosage: 800 MG, 3X/DAY
  5. LORTAB [Concomitant]
     Indication: BACK PAIN
     Dosage: 10 MG, 3X/DAY
  6. CYMBALTA [Concomitant]
     Indication: DEPRESSION
     Dosage: 60 MG, 1X/DAY
  7. TRAMADOL [Concomitant]
     Indication: BACK PAIN
     Dosage: UNK

REACTIONS (1)
  - PAIN [None]
